FAERS Safety Report 7987939 (Version 2)
Quarter: 2012Q4

REPORT INFORMATION
  Report Type: Report from Study
  Country: TR (occurrence: TR)
  Receive Date: 20110613
  Receipt Date: 20121120
  Transmission Date: 20130627
  Serious: Yes (Death)
  Sender: FDA-Public Use
  Company Number: TR-CELGENEUS-161-C5013-11060743

PATIENT
  Age: 56 Year
  Sex: Male

DRUGS (3)
  1. CC-5013 [Suspect]
     Indication: MYELOFIBROSIS
     Dosage: 10 Milligram
     Route: 048
     Dates: start: 20101210, end: 20110101
  2. FOLIC ACID [Concomitant]
     Indication: DRUG USE FOR UNKNOWN INDICATION
     Route: 065
  3. TRANSFUSION SUPPORT [Concomitant]
     Indication: DRUG USE FOR UNKNOWN INDICATION
     Route: 065

REACTIONS (1)
  - Sepsis [Fatal]
